FAERS Safety Report 8167768-2 (Version None)
Quarter: 2012Q1

REPORT INFORMATION
  Report Type: 
  Country: None (occurrence: None)
  Receive Date: 20120221
  Receipt Date: 20120207
  Transmission Date: 20120608
  Serious: Yes (Other)
  Sender: FDA-Public Use
  Company Number: AUR-APL-2011-04610

PATIENT
  Age: 2 Year
  Sex: Male

DRUGS (2)
  1. CHILDREN'S MOTRIN [Suspect]
     Indication: RESPIRATORY DISORDER
     Dosage: 2 IN 1 D, ORAL
     Route: 048
     Dates: start: 20100111, end: 20100117
  2. AMOXICILLIN [Suspect]
     Indication: RESPIRATORY DISORDER
     Dates: start: 20100101

REACTIONS (6)
  - PRODUCT CONTAMINATION MICROBIAL [None]
  - PRODUCT MEASURED POTENCY ISSUE [None]
  - PITYRIASIS RUBRA PILARIS [None]
  - ABDOMINAL PAIN UPPER [None]
  - PRODUCT CONTAMINATION PHYSICAL [None]
  - PRODUCT QUALITY ISSUE [None]
